FAERS Safety Report 10028854 (Version 2)
Quarter: 2014Q1

REPORT INFORMATION
  Report Type: Spontaneous
  Country: DE (occurrence: DE)
  Receive Date: 20140321
  Receipt Date: 20140321
  Transmission Date: 20141002
  Serious: Yes (Other)
  Sender: FDA-Public Use
  Company Number: DE-B.I. PHARMACEUTICALS,INC./RIDGEFIELD-2014-BI-07703DE

PATIENT
  Age: 89 Year
  Sex: Female
  Weight: 48 kg

DRUGS (3)
  1. PRADAXA [Suspect]
     Indication: ATRIAL FIBRILLATION
     Dosage: 220 NR
     Route: 048
  2. RAMIPRIL [Concomitant]
     Route: 048
  3. TORASEMID 10 [Concomitant]
     Dosage: 20 MG
     Route: 048

REACTIONS (3)
  - Basal cell carcinoma [Unknown]
  - Haemorrhage [Not Recovered/Not Resolved]
  - Haematoma [Unknown]
